FAERS Safety Report 6396618-X (Version None)
Quarter: 2009Q4

REPORT INFORMATION
  Report Type: 
  Country: None (occurrence: None)
  Receive Date: 20091008
  Receipt Date: 20091008
  Transmission Date: 20100525
  Serious: Yes (Hospitalization)
  Sender: FDA-Public Use
  Company Number: None

PATIENT
  Age: 61 Year
  Sex: Male
  Weight: 69.5 kg

DRUGS (2)
  1. CRESTOR [Suspect]
     Indication: CORONARY ARTERY DISEASE
     Dosage: 5 MG 1 TIME DAILY ORAL 047
     Route: 048
     Dates: start: 20090501, end: 20090601
  2. CRESTOR [Suspect]
     Indication: LOW DENSITY LIPOPROTEIN INCREASED
     Dosage: 5 MG 1 TIME DAILY ORAL 047
     Route: 048
     Dates: start: 20090501, end: 20090601

REACTIONS (2)
  - MYALGIA [None]
  - PYREXIA [None]
